FAERS Safety Report 5309088-7 (Version None)
Quarter: 2007Q2

REPORT INFORMATION
  Report Type: 
  Country: None (occurrence: None)
  Receive Date: 20070426
  Receipt Date: 20070419
  Transmission Date: 20071010
  Serious: Yes (Hospitalization)
  Sender: FDA-Public Use
  Company Number: IT-MERCK-0704ITA00020

PATIENT
  Age: 78 Year
  Sex: Male

DRUGS (3)
  1. COSOPT [Suspect]
     Indication: GLAUCOMA
     Route: 047
     Dates: start: 20040101
  2. XALATAN [Concomitant]
     Indication: GLAUCOMA
     Route: 065
  3. ACETAMINOPHEN AND CHLORPHENIRAMINE MALEATE [Concomitant]
     Indication: INFLUENZA LIKE ILLNESS
     Route: 065

REACTIONS (3)
  - RETROGRADE AMNESIA [None]
  - SINUS DISORDER [None]
  - SYNCOPE [None]
